FAERS Safety Report 16976430 (Version 2)
Quarter: 2019Q4

REPORT INFORMATION
  Report Type: Spontaneous
  Country: US (occurrence: US)
  Receive Date: 20191030
  Receipt Date: 20191127
  Transmission Date: 20200122
  Serious: Yes (Other)
  Sender: FDA-Public Use
  Company Number: US-JNJFOC-20191033607

PATIENT
  Age: 55 Year
  Sex: Female

DRUGS (5)
  1. BUTALBITAL [Concomitant]
     Active Substance: BUTALBITAL
     Indication: MIGRAINE
     Dosage: 50-325-40
  2. XARELTO [Suspect]
     Active Substance: RIVAROXABAN
     Indication: DEEP VEIN THROMBOSIS
  3. VITAMIN D3 [Concomitant]
     Active Substance: CHOLECALCIFEROL
     Indication: OSTEOPOROSIS
  4. XARELTO [Suspect]
     Active Substance: RIVAROXABAN
     Indication: CEREBROVASCULAR ACCIDENT
     Dosage: PRESCRIPTION NUMBER: 6621370
     Route: 048
     Dates: start: 201810, end: 201910
  5. TOPIRAMATE. [Concomitant]
     Active Substance: TOPIRAMATE
     Indication: MIGRAINE

REACTIONS (10)
  - Dizziness [Unknown]
  - Loss of consciousness [Unknown]
  - Urinary tract infection [Unknown]
  - Product dose omission [Unknown]
  - Nausea [Unknown]
  - Back pain [Unknown]
  - Treatment noncompliance [Unknown]
  - Peripheral swelling [Unknown]
  - Headache [Unknown]
  - Cataract [Unknown]

NARRATIVE: CASE EVENT DATE: 201909
